FAERS Safety Report 9226366 (Version 1)
Quarter: 2013Q2

REPORT INFORMATION
  Report Type: Spontaneous
  Country: US (occurrence: US)
  Receive Date: 20130411
  Receipt Date: 20130411
  Transmission Date: 20140414
  Serious: No
  Sender: FDA-Public Use
  Company Number: US-009507513-1304USA002792

PATIENT
  Sex: Female

DRUGS (8)
  1. VICTRELIS [Suspect]
     Dosage: UNK UNK, EVERY 7 TO 9 HOURS STARTING ON WEEK 5
     Route: 048
  2. PEG-INTRON [Suspect]
     Dosage: REDIPEN
  3. RIBAPAK [Suspect]
     Dosage: UNK
     Route: 048
  4. NAPROSYN [Concomitant]
     Route: 048
  5. CALTRATE WITH VITAMIN D [Concomitant]
     Route: 048
  6. CYANOCOBALAMIN [Concomitant]
  7. VITAMINS (UNSPECIFIED) [Concomitant]
     Route: 048
  8. IRON (UNSPECIFIED) [Concomitant]

REACTIONS (8)
  - Dyspnoea [Unknown]
  - Dry skin [Unknown]
  - Impaired healing [Unknown]
  - Laceration [Unknown]
  - Decreased appetite [Unknown]
  - Dry mouth [Unknown]
  - Fatigue [Unknown]
  - Dysphagia [Unknown]
